FAERS Safety Report 20182890 (Version 1)
Quarter: 2021Q4

REPORT INFORMATION
  Report Type: Report from Study
  Country: CA (occurrence: CA)
  Receive Date: 20211214
  Receipt Date: 20211214
  Transmission Date: 20220303
  Serious: Yes (Other)
  Sender: FDA-Public Use
  Company Number: CA-TAKEDA-2016TUS000672

PATIENT
  Age: 70 Year
  Sex: Male

DRUGS (17)
  1. VEDOLIZUMAB [Suspect]
     Active Substance: VEDOLIZUMAB
     Indication: Crohn^s disease
     Dosage: 300 MILLIGRAM
     Route: 042
     Dates: start: 20150807
  2. VEDOLIZUMAB [Suspect]
     Active Substance: VEDOLIZUMAB
     Dosage: 300 MILLIGRAM, Q4WEEKS
     Route: 042
     Dates: start: 20171013
  3. VEDOLIZUMAB [Suspect]
     Active Substance: VEDOLIZUMAB
     Dosage: 300 MILLIGRAM, Q4WEEKS
     Route: 042
  4. GABAPENTIN [Concomitant]
     Active Substance: GABAPENTIN
     Dosage: 300 MILLIGRAM, QD
  5. IMODIUM [Concomitant]
     Active Substance: LOPERAMIDE HYDROCHLORIDE
     Dosage: UNK UNK, QD
  6. CODEINE [Concomitant]
     Active Substance: CODEINE
     Dosage: 60 MILLIGRAM, QD
  7. FLOMAX                             /00889901/ [Concomitant]
     Dosage: UNK UNK, QD
  8. NEXIUM                             /01479302/ [Concomitant]
     Dosage: UNK UNK, BID
  9. FUROSEMIDE [Concomitant]
     Active Substance: FUROSEMIDE
     Dosage: 20 MILLIGRAM
  10. LORAZEPAM [Concomitant]
     Active Substance: LORAZEPAM
     Dosage: 0.5 MILLIGRAM
  11. PREDNISONE [Concomitant]
     Active Substance: PREDNISONE
     Dosage: 20 MILLIGRAM, QD
  12. VITAMIN D NOS [Concomitant]
     Active Substance: VITAMIN D NOS
     Dosage: UNK
  13. VITAMIN E                          /00110501/ [Concomitant]
     Dosage: UNK
  14. VITAMIN C                          /00008001/ [Concomitant]
     Dosage: UNK
  15. CALCIUM [Concomitant]
     Active Substance: CALCIUM
     Dosage: UNK
  16. FERROUS SULPHATE                   /00023503/ [Concomitant]
     Dosage: UNK
  17. OMEGA 3 6 9                        /01334101/ [Concomitant]
     Dosage: UNK

REACTIONS (19)
  - Pneumonia [Unknown]
  - Sneezing [Unknown]
  - Skin ulcer [Unknown]
  - Diarrhoea [Recovered/Resolved with Sequelae]
  - Eye irritation [Unknown]
  - Weight decreased [Unknown]
  - Chills [Unknown]
  - Malaise [Unknown]
  - Respiratory tract infection [Unknown]
  - Hot flush [Unknown]
  - Chest discomfort [Unknown]
  - Asthenia [Unknown]
  - Rhinorrhoea [Unknown]
  - Fatigue [Unknown]
  - Headache [Unknown]
  - Pyrexia [Unknown]
  - Influenza like illness [Recovered/Resolved]
  - Cough [Unknown]
  - Off label use [Unknown]

NARRATIVE: CASE EVENT DATE: 20151101
